FAERS Safety Report 8356614-X (Version None)
Quarter: 2012Q1

REPORT INFORMATION
  Report Type: 
  Country: None (occurrence: None)
  Receive Date: 20120315
  Receipt Date: 20110318
  Transmission Date: 20120608
  Serious: Yes (Other)
  Sender: FDA-Public Use
  Company Number: PHHY2011US01982

PATIENT
  Age: 55 Year
  Sex: Female

DRUGS (3)
  1. FAMPRIDINE [Concomitant]
  2. GILENYA [Suspect]
     Dosage: 0.5 MG, DAILY, ORAL
     Route: 048
  3. GILENYA [Suspect]
     Indication: RELAPSING-REMITTING MULTIPLE SCLEROSIS
     Dosage: 0.5 MG, DAILY, ORAL
     Route: 048
     Dates: start: 20110116, end: 20110219

REACTIONS (4)
  - NAUSEA [None]
  - VERTIGO [None]
  - INCORRECT DOSE ADMINISTERED [None]
  - HYPERTENSION [None]
